FAERS Safety Report 6258443-X (Version None)
Quarter: 2009Q3

REPORT INFORMATION
  Report Type: 
  Country: None (occurrence: None)
  Receive Date: 20090702
  Receipt Date: 20090702
  Transmission Date: 20100115
  Serious: Yes (Life-Threatening, Hospitalization)
  Sender: FDA-Public Use
  Company Number: None

PATIENT
  Age: 14 Year
  Sex: Male
  Weight: 45.3597 kg

DRUGS (1)
  1. CONCERTA [Suspect]
     Indication: SUICIDE ATTEMPT
     Dosage: 54MG MORNNING PO
     Route: 048
     Dates: start: 20080715, end: 20090427

REACTIONS (9)
  - ASPHYXIA [None]
  - CYANOSIS [None]
  - DRUG EFFECT DECREASED [None]
  - FEELING ABNORMAL [None]
  - INTENTIONAL SELF-INJURY [None]
  - LACERATION [None]
  - LOSS OF CONSCIOUSNESS [None]
  - OBSESSIVE THOUGHTS [None]
  - SUICIDE ATTEMPT [None]
